FAERS Safety Report 16089293 (Version 1)
Quarter: 2019Q2

REPORT INFORMATION
  Report Type: Spontaneous
  Country: US (occurrence: US)
  Receive Date: 20190319
  Receipt Date: 20190319
  Transmission Date: 20190711
  Serious: No
  Sender: FDA-Public Use
  Company Number: None

PATIENT
  Age: 52 Year
  Sex: Female
  Weight: 81 kg

DRUGS (1)
  1. LUTERA [Suspect]
     Active Substance: ETHINYL ESTRADIOL\LEVONORGESTREL
     Indication: CONTRACEPTION
     Dosage: ?          OTHER STRENGTH:-;QUANTITY:1 TABLET(S);?
     Route: 048
     Dates: start: 20070101, end: 20140901

REACTIONS (2)
  - Suicidal ideation [None]
  - Breast cancer [None]
